FAERS Safety Report 19358576 (Version 1)
Quarter: 2021Q2

REPORT INFORMATION
  Report Type: Spontaneous
  Country: US (occurrence: US)
  Receive Date: 20210602
  Receipt Date: 20210602
  Transmission Date: 20210717
  Serious: No
  Sender: FDA-Public Use
  Company Number: None

PATIENT
  Age: 63 Year
  Sex: Female

DRUGS (1)
  1. SERTRALINE 50 MG TAB CIPL [Suspect]
     Active Substance: SERTRALINE HYDROCHLORIDE
     Route: 048
     Dates: start: 20210530

REACTIONS (2)
  - Agranulocytosis [None]
  - White blood cell count decreased [None]

NARRATIVE: CASE EVENT DATE: 20210602
